FAERS Safety Report 12191068 (Version 1)
Quarter: 2016Q1

REPORT INFORMATION
  Report Type: Spontaneous
  Country: JP (occurrence: JP)
  Receive Date: 20160318
  Receipt Date: 20160318
  Transmission Date: 20160526
  Serious: Yes (Death)
  Sender: FDA-Public Use
  Company Number: JP-SHIONOGI, INC-2016000367

PATIENT
  Sex: Male

DRUGS (1)
  1. FINIBAX [Suspect]
     Active Substance: DORIPENEM MONOHYDRATE
     Indication: BACTERAEMIA
     Dosage: 0.25 G, TID
     Route: 041
     Dates: start: 20160307, end: 20160309

REACTIONS (1)
  - Bacteraemia [Fatal]

NARRATIVE: CASE EVENT DATE: 20160309
